FAERS Safety Report 19972696 (Version 1)
Quarter: 2021Q4

REPORT INFORMATION
  Report Type: Spontaneous
  Country: US (occurrence: US)
  Receive Date: 20211019
  Receipt Date: 20211019
  Transmission Date: 20220303
  Serious: No
  Sender: FDA-Public Use
  Company Number: US-HORIZON THERAPEUTICS-HZN-2021-002714

PATIENT
  Age: 2 Year
  Sex: Male

DRUGS (2)
  1. PROCYSBI [Suspect]
     Active Substance: CYSTEAMINE BITARTRATE
     Indication: Cystinosis
     Dosage: ONE 300MG PACKET WITH ONE 75MG PACKET
     Route: 048
     Dates: start: 20191113
  2. PROCYSBI [Suspect]
     Active Substance: CYSTEAMINE BITARTRATE
     Dosage: 325 MG, BID (1, 25 MG CAPSULES + 1, 300 MG PACKET)
     Route: 048

REACTIONS (3)
  - Product storage error [Unknown]
  - Vomiting [Recovering/Resolving]
  - Nausea [Recovering/Resolving]

NARRATIVE: CASE EVENT DATE: 20210523
